FAERS Safety Report 5467722-5 (Version None)
Quarter: 2007Q3

REPORT INFORMATION
  Report Type: 
  Country: None (occurrence: None)
  Receive Date: 20070814
  Receipt Date: 20070709
  Transmission Date: 20080115
  Serious: Yes (Other)
  Sender: FDA-Public Use
  Company Number: 200714974US

PATIENT
  Age: 75 Year
  Sex: Male

DRUGS (9)
  1. INSULIN GLULISINE (APIDRA) [Suspect]
     Indication: TYPE 2 DIABETES MELLITUS
     Dosage: 5-9 U AC IM
     Route: 030
     Dates: start: 20070401
  2. OPTICLICK [Suspect]
     Indication: TYPE 2 DIABETES MELLITUS
     Dates: start: 20070401
  3. LANTUS [Concomitant]
  4. METFORMIN HCL [Concomitant]
  5. GLYBURIDE [Concomitant]
  6. ALLERGY MEDICATION [Concomitant]
  7. FUROSEMIDE [Concomitant]
  8. PREDNISONE [Concomitant]
  9. SALBUTAMOL (PROVENTIL) [Concomitant]

REACTIONS (2)
  - HYPERGLYCAEMIA [None]
  - INCORRECT ROUTE OF DRUG ADMINISTRATION [None]
